FAERS Safety Report 19735902 (Version 1)
Quarter: 2021Q3

REPORT INFORMATION
  Report Type: Spontaneous
  Country: US (occurrence: US)
  Receive Date: 20210823
  Receipt Date: 20210823
  Transmission Date: 20211014
  Serious: No
  Sender: FDA-Public Use
  Company Number: US-FRESENIUS MEDICAL CARE RENAL THERAPIES GROUP-FMC-2108-001288

PATIENT
  Age: 71 Year
  Sex: Male
  Weight: 124 kg

DRUGS (1)
  1. DELFLEX [Suspect]
     Active Substance: CALCIUM CHLORIDE\DEXTROSE\MAGNESIUM CHLORIDE\SODIUM CHLORIDE\SODIUM LACTATE
     Indication: END STAGE RENAL DISEASE
     Dosage: 7 DAYS A WEEK, EXCHANGES 7, FILL VOLUME 2900 ML, DWELL TIME 1.25 HOURS, LAST FILL VOLUME 2000 ML, DA
     Route: 033

REACTIONS (2)
  - Umbilical hernia [Unknown]
  - Bloody peritoneal effluent [Unknown]
